FAERS Safety Report 21410980 (Version 3)
Quarter: 2022Q4

REPORT INFORMATION
  Report Type: Spontaneous
  Country: US (occurrence: US)
  Receive Date: 20221005
  Receipt Date: 20221114
  Transmission Date: 20230112
  Serious: No
  Sender: FDA-Public Use
  Company Number: US-PFIZER INC-202201161123

PATIENT
  Age: 1 Year
  Sex: Female
  Weight: 11.8 kg

DRUGS (1)
  1. GENOTROPIN [Suspect]
     Active Substance: SOMATROPIN
     Indication: Growth disorder
     Dosage: 0.4 MG, DAILY (INJECTED EVERY NIGHT)
     Dates: start: 20220429

REACTIONS (2)
  - Device leakage [Unknown]
  - Device breakage [Unknown]

NARRATIVE: CASE EVENT DATE: 20220101
